FAERS Safety Report 12582497 (Version 1)
Quarter: 2016Q3

REPORT INFORMATION
  Report Type: Spontaneous
  Country: US (occurrence: None)
  Receive Date: 20160721
  Receipt Date: 20160721
  Transmission Date: 20161109
  Serious: No
  Sender: FDA-Public Use
  Company Number: None

PATIENT
  Age: 20 Year
  Sex: Male

DRUGS (1)
  1. GENVOYA [Suspect]
     Active Substance: COBICISTAT\ELVITEGRAVIR\EMTRICITABINE\TENOFOVIR ALAFENAMIDE FUMARATE
     Indication: IMMUNODEFICIENCY
     Dosage: 1 TABLET DAILY BY MOUTH
     Route: 048
     Dates: start: 20160608

REACTIONS (1)
  - Weight increased [None]

NARRATIVE: CASE EVENT DATE: 20160609
